FAERS Safety Report 19730980 (Version 1)
Quarter: 2021Q3

REPORT INFORMATION
  Report Type: Spontaneous
  Country: US (occurrence: US)
  Receive Date: 20210820
  Receipt Date: 20210820
  Transmission Date: 20211014
  Serious: No
  Sender: FDA-Public Use
  Company Number: US-MYLANLABS-2021M1041449

PATIENT

DRUGS (1)
  1. DIMETHYL FUMARATE DELAYED?RELEASE CAPSULES [Suspect]
     Active Substance: DIMETHYL FUMARATE
     Indication: MULTIPLE SCLEROSIS
     Dosage: UNK

REACTIONS (4)
  - Pruritus [Unknown]
  - Product substitution error [Unknown]
  - Adverse drug reaction [Unknown]
  - Rash [Unknown]
